FAERS Safety Report 7287757-X (Version None)
Quarter: 2011Q1

REPORT INFORMATION
  Report Type: 
  Country: None (occurrence: None)
  Receive Date: 20110211
  Receipt Date: 20110201
  Transmission Date: 20110831
  Serious: Yes (Hospitalization)
  Sender: FDA-Public Use
  Company Number: US-JNJFOC-20110200930

PATIENT
  Sex: Male
  Weight: 40.7 kg

DRUGS (7)
  1. PREVACID [Concomitant]
  2. PROBIOTIC [Concomitant]
  3. INFLIXIMAB, RECOMBINANT [Suspect]
     Route: 042
  4. MERCAPTOPURINE [Concomitant]
  5. SULFASALAZINE [Concomitant]
  6. IRON [Concomitant]
  7. INFLIXIMAB, RECOMBINANT [Suspect]
     Indication: CROHN'S DISEASE
     Route: 042

REACTIONS (1)
  - CROHN'S DISEASE [None]
